FAERS Safety Report 9449570 (Version 2)
Quarter: 2013Q3

REPORT INFORMATION
  Report Type: Spontaneous
  Country: US (occurrence: US)
  Receive Date: 20130809
  Receipt Date: 20130812
  Transmission Date: 20140515
  Serious: No
  Sender: FDA-Public Use
  Company Number: US-009507513-1308USA000563

PATIENT
  Sex: Male

DRUGS (3)
  1. NASONEX [Suspect]
     Dosage: UNK, 50 MICROGRAMS (120 SPRAYS) 17 G
     Route: 045
     Dates: end: 2013
  2. NASONEX [Suspect]
     Dosage: UNK, 50 MICROGRAMS (120 SPRAYS) 17 G
     Route: 045
     Dates: start: 2013, end: 2013
  3. NASONEX [Suspect]
     Dosage: UNK, 50 MICROGRAMS (120 SPRAYS) 17 G
     Route: 045
     Dates: start: 2013

REACTIONS (2)
  - Incorrect dose administered [Unknown]
  - Product quality issue [Unknown]
